FAERS Safety Report 15679464 (Version 1)
Quarter: 2018Q4

REPORT INFORMATION
  Report Type: Spontaneous
  Country: CA (occurrence: CA)
  Receive Date: 20181203
  Receipt Date: 20181203
  Transmission Date: 20190205
  Serious: Yes (Hospitalization, Other)
  Sender: FDA-Public Use
  Company Number: CA-TEVA-2018-CA-981148

PATIENT
  Age: 17 Year
  Sex: Female

DRUGS (3)
  1. TOPAMAX [Suspect]
     Active Substance: TOPIRAMATE
     Indication: SEIZURE
     Route: 065
  2. SERTRALINE HYDROCHLORIDE. [Suspect]
     Active Substance: SERTRALINE HYDROCHLORIDE
     Route: 065
  3. SERTRALINE HYDROCHLORIDE. [Suspect]
     Active Substance: SERTRALINE HYDROCHLORIDE
     Indication: PRODUCT USED FOR UNKNOWN INDICATION
     Route: 065

REACTIONS (15)
  - Depression [Not Recovered/Not Resolved]
  - Eye swelling [Not Recovered/Not Resolved]
  - Irritability [Not Recovered/Not Resolved]
  - Skin disorder [Not Recovered/Not Resolved]
  - Drug ineffective [Not Recovered/Not Resolved]
  - Psychotic disorder [Not Recovered/Not Resolved]
  - Abnormal behaviour [Not Recovered/Not Resolved]
  - Haematemesis [Not Recovered/Not Resolved]
  - Swelling face [Not Recovered/Not Resolved]
  - Product use issue [Not Recovered/Not Resolved]
  - Anger [Not Recovered/Not Resolved]
  - Personality change [Not Recovered/Not Resolved]
  - Decreased appetite [Not Recovered/Not Resolved]
  - Suicidal ideation [Not Recovered/Not Resolved]
  - Euphoric mood [Not Recovered/Not Resolved]
